FAERS Safety Report 8870024 (Version 1)
Quarter: 2012Q4

REPORT INFORMATION
  Report Type: Spontaneous
  Country: US (occurrence: None)
  Receive Date: 20121025
  Receipt Date: 20121025
  Transmission Date: 20130627
  Serious: Yes (Other)
  Sender: FDA-Public Use
  Company Number: None

PATIENT
  Age: 61 Year
  Sex: Female
  Weight: 49.9 kg

DRUGS (1)
  1. ATORVASTATIN [Suspect]
     Indication: CHOLESTEROL HIGH
     Dosage: 10mg 1 A DAY po
     Route: 048
     Dates: start: 20120821, end: 20120910

REACTIONS (2)
  - Skin disorder [None]
  - Scar [None]
